FAERS Safety Report 10472300 (Version 1)
Quarter: 2014Q3

REPORT INFORMATION
  Report Type: Spontaneous
  Country: US (occurrence: None)
  Receive Date: 20140922
  Receipt Date: 20140922
  Transmission Date: 20150326
  Serious: Yes (Hospitalization)
  Sender: FDA-Public Use
  Company Number: 2014SCAL000097

PATIENT
  Age: 28 Year
  Sex: Male

DRUGS (3)
  1. CLONIDINE HYDROCHLORIDE. [Suspect]
     Active Substance: CLONIDINE HYDROCHLORIDE
     Indication: DRUG EFFECT PROLONGED
  2. CLONAZEPAM. [Suspect]
     Active Substance: CLONAZEPAM
     Indication: PRODUCT USED FOR UNKNOWN INDICATION
  3. QUETIAPINE [Suspect]
     Active Substance: QUETIAPINE
     Indication: PRODUCT USED FOR UNKNOWN INDICATION

REACTIONS (10)
  - Drug abuse [None]
  - Heart rate decreased [None]
  - Agitation [None]
  - Respiratory acidosis [None]
  - Suicidal ideation [None]
  - Depression [None]
  - Hypercapnia [None]
  - Respiratory rate decreased [None]
  - Intentional overdose [None]
  - Sinus bradycardia [None]
